FAERS Safety Report 7475696-0 (Version None)
Quarter: 2011Q2

REPORT INFORMATION
  Report Type: 
  Country: None (occurrence: None)
  Receive Date: 20110512
  Receipt Date: 20110502
  Transmission Date: 20111010
  Serious: Yes (Other)
  Sender: FDA-Public Use
  Company Number: DE-ELI_LILLY_AND_COMPANY-DE201105000451

PATIENT
  Age: 75 Year
  Sex: Male

DRUGS (2)
  1. HUMULIN R [Suspect]
     Indication: DIABETES MELLITUS
     Route: 058
  2. HUMALOG [Suspect]
     Indication: DIABETES MELLITUS

REACTIONS (7)
  - RHINORRHOEA [None]
  - SWELLING FACE [None]
  - DYSPNOEA [None]
  - RASH [None]
  - LIP SWELLING [None]
  - HYPERSENSITIVITY [None]
  - EYE PRURITUS [None]
